FAERS Safety Report 19224883 (Version 1)
Quarter: 2021Q2

REPORT INFORMATION
  Report Type: Spontaneous
  Country: US (occurrence: US)
  Receive Date: 20210505
  Receipt Date: 20210505
  Transmission Date: 20210717
  Serious: No
  Sender: FDA-Public Use
  Company Number: US-ROCHE-2668932

PATIENT
  Age: 77 Year
  Sex: Female

DRUGS (14)
  1. ESTRADIOL. [Concomitant]
     Active Substance: ESTRADIOL
     Dosage: APPLY 1 PATCH TOPICALLY TWICE A WEEK
     Route: 061
  2. NETARSUDIL. [Concomitant]
     Active Substance: NETARSUDIL
     Dosage: PLACE 1 DROP INTO LEFT EYE NIGHTLY
     Route: 047
  3. ESBRIET [Suspect]
     Active Substance: PIRFENIDONE
     Route: 048
     Dates: start: 20200812
  4. CALCIUM CARBONATE. [Concomitant]
     Active Substance: CALCIUM CARBONATE
     Dosage: TAKE BY MOUTH AS NEEDED
     Route: 048
  5. MIRTAZAPINE. [Concomitant]
     Active Substance: MIRTAZAPINE
     Route: 048
     Dates: start: 20200710
  6. DORZOLAMIDE [Concomitant]
     Active Substance: DORZOLAMIDE
     Dosage: 1 DROP INTO LEFT EYE 2 TIMES DAILY
  7. LEVALBUTEROL. [Concomitant]
     Active Substance: LEVALBUTEROL
     Indication: WHEEZING
     Dosage: USE 1 AMPULE 72ML IN NEBULIZER EVERY SIX HOURS AS NEEDED FOR WHEEZING.
  8. BRIMONIDINE;TIMOLOL [Concomitant]
     Dosage: 0.2?0.5% OPHTHALMIC SOLUTION: PLACE 1 DROP INTO BOTH EYES TWO TIMES DAILY
     Route: 047
  9. DONEPEZIL. [Concomitant]
     Active Substance: DONEPEZIL
     Dosage: TAKE 1 TABLET, NIGHTLY
  10. SIMVASTATIN. [Concomitant]
     Active Substance: SIMVASTATIN
     Dosage: AT NIGHT
  11. ESBRIET [Suspect]
     Active Substance: PIRFENIDONE
     Route: 048
     Dates: start: 20200814
  12. TRAVOPROST. [Concomitant]
     Active Substance: TRAVOPROST
     Dosage: PLACE 1 DROP INTO LEFT EYE NIGHTLY
     Route: 047
  13. ESBRIET [Suspect]
     Active Substance: PIRFENIDONE
     Indication: IDIOPATHIC PULMONARY FIBROSIS
     Dosage: THREE TIMES A DAY ORALLY ONGOING : YES
     Route: 048
     Dates: start: 20200813
  14. EZETIMIBE. [Concomitant]
     Active Substance: EZETIMIBE
     Route: 048

REACTIONS (5)
  - Fatigue [Unknown]
  - Abdominal discomfort [Recovering/Resolving]
  - Dyspepsia [Recovered/Resolved]
  - Headache [Unknown]
  - Decreased appetite [Unknown]

NARRATIVE: CASE EVENT DATE: 20200828
